FAERS Safety Report 8556284-1 (Version None)
Quarter: 2012Q3

REPORT INFORMATION
  Report Type: 
  Country: None (occurrence: None)
  Receive Date: 20120801
  Receipt Date: 20120727
  Transmission Date: 20120928
  Serious: No
  Sender: FDA-Public Use
  Company Number: US-PFIZER INC-2012142392

PATIENT
  Sex: Female
  Weight: 52.154 kg

DRUGS (6)
  1. LYRICA [Suspect]
     Indication: PHANTOM PAIN
     Dosage: 50 MG, 3X/DAY
     Route: 048
     Dates: start: 20120501, end: 20120520
  2. TRIMETHOPRIM [Concomitant]
     Indication: PROPHYLAXIS
     Dosage: 100MG DAILY
     Dates: start: 20120412
  3. TRAMADOL [Concomitant]
     Indication: PAIN
     Dosage: 50 MG, 3X/DAY
  4. LYRICA [Suspect]
     Dosage: TWO CAPSULES OF 50MG IN THE MORNING, AFTERNOON AND THREE CAPSULES OF 50MG IN THE EVENING
     Route: 048
     Dates: start: 20120523, end: 20120612
  5. EXTRA STRENGTH TYLENOL [Suspect]
     Indication: PAIN
     Dosage: TWO TABLETS OF AN UNKNOWN DOSE TWO TIMES A DAY
     Route: 048
  6. EXTRA STRENGTH TYLENOL [Suspect]
     Indication: HEADACHE

REACTIONS (4)
  - HEADACHE [None]
  - WEIGHT INCREASED [None]
  - DRUG INEFFECTIVE [None]
  - HYPERSENSITIVITY [None]
